FAERS Safety Report 11241768 (Version 6)
Quarter: 2016Q3

REPORT INFORMATION
  Report Type: Spontaneous
  Country: FR (occurrence: FR)
  Receive Date: 20150706
  Receipt Date: 20160914
  Transmission Date: 20161109
  Serious: Yes (Hospitalization, Congenital Anomaly, Other)
  Sender: FDA-Public Use
  Company Number: FR-ABBVIE-15P-056-1421545-00

PATIENT
  Sex: Female

DRUGS (1)
  1. DEPAKINE [Suspect]
     Active Substance: VALPROATE SODIUM
     Indication: MATERNAL EXPOSURE TIMING UNSPECIFIED
     Route: 064

REACTIONS (43)
  - Binocular eye movement disorder [Unknown]
  - Dysmorphism [Not Recovered/Not Resolved]
  - Foetal anticonvulsant syndrome [Not Recovered/Not Resolved]
  - Ill-defined disorder [Unknown]
  - Laryngitis [Unknown]
  - Myopia [Unknown]
  - Astigmatism [Unknown]
  - Enuresis [Unknown]
  - Pyrexia [Unknown]
  - Malaise [Unknown]
  - Learning disorder [Not Recovered/Not Resolved]
  - Aggression [Not Recovered/Not Resolved]
  - Intentional self-injury [Not Recovered/Not Resolved]
  - Tonsillitis [Unknown]
  - Urinary tract infection [Unknown]
  - Weight gain poor [Unknown]
  - Intellectual disability [Unknown]
  - Ear infection [Unknown]
  - Talipes [Unknown]
  - Developmental delay [Not Recovered/Not Resolved]
  - Autism spectrum disorder [Unknown]
  - Dacryostenosis congenital [Unknown]
  - Visual impairment [Unknown]
  - Coordination abnormal [Not Recovered/Not Resolved]
  - Nasopharyngitis [Unknown]
  - Vomiting [Recovered/Resolved]
  - Autism [Not Recovered/Not Resolved]
  - Epilepsy [Not Recovered/Not Resolved]
  - Cognitive disorder [Not Recovered/Not Resolved]
  - Language disorder [Not Recovered/Not Resolved]
  - Foetal exposure during pregnancy [Unknown]
  - Abnormal behaviour [Not Recovered/Not Resolved]
  - Disturbance in attention [Not Recovered/Not Resolved]
  - Fatigue [Unknown]
  - Developmental hip dysplasia [Unknown]
  - Hypotonia [Unknown]
  - Speech disorder [Not Recovered/Not Resolved]
  - Balance disorder [Not Recovered/Not Resolved]
  - Conjunctivitis [Unknown]
  - Constipation [Unknown]
  - Vomiting [Not Recovered/Not Resolved]
  - Feeling jittery [Unknown]
  - Jaundice neonatal [Unknown]

NARRATIVE: CASE EVENT DATE: 2003
